FAERS Safety Report 5379577-8 (Version None)
Quarter: 2007Q3

REPORT INFORMATION
  Report Type: 
  Country: None (occurrence: None)
  Receive Date: 20070703
  Receipt Date: 20070621
  Transmission Date: 20080115
  Serious: Yes (Other)
  Sender: FDA-Public Use
  Company Number: 2007-01030

PATIENT
  Age: 56 Year
  Sex: Male
  Weight: 64 kg

DRUGS (23)
  1. VELCADE [Suspect]
     Indication: MULTIPLE MYELOMA
     Dosage: 2.20 MG, INTRAVENOUS
     Route: 042
     Dates: start: 20070319, end: 20070322
  2. METHYLPREDNISOLONE [Concomitant]
  3. DEXAMETHASONE 0.5MG TAB [Concomitant]
  4. FAMOTIDINE [Concomitant]
  5. OMEPRAL (OMEPRAZOLE) [Concomitant]
  6. FLAVITAN            (FLAVINE ADENINE DINUCLEOTIDE) [Concomitant]
  7. ALLOPURINOL [Concomitant]
  8. MAGNESIUM OXIDE (MAGNESIUM OXIDE) [Concomitant]
  9. SULFAMETHOXAZOLE + TRIMETHOPRIM [Concomitant]
  10. STREPTOMICIN-SULFAT  (STREPTOMYCIN SULFATE) [Concomitant]
  11. NEUPOGEN [Concomitant]
  12. ROCEPHIN [Concomitant]
  13. MAXIPIME [Concomitant]
  14. TRANSAMIN (TRANEXAMIC ACID) [Concomitant]
  15. SOLU-MEDROL [Concomitant]
  16. ADONA  (CARBAZOCHROME SODIUM SULFONATE) [Concomitant]
  17. MINOPHAGEN C    (AMINOACETIC ACID, GLYCYRRHIZIC ACID) [Concomitant]
  18. POLARAMINE [Concomitant]
  19. SOLU-CORTEF [Concomitant]
  20. PLATELETS [Concomitant]
  21. RED BLOOD CELLS [Concomitant]
  22. FINIBAX [Concomitant]
  23. FUNGUARD [Concomitant]

REACTIONS (3)
  - BRONCHOPULMONARY ASPERGILLOSIS [None]
  - PULMONARY ALVEOLAR HAEMORRHAGE [None]
  - SEPSIS [None]
